FAERS Safety Report 21118890 (Version 1)
Quarter: 2022Q3

REPORT INFORMATION
  Report Type: Spontaneous
  Country: US (occurrence: US)
  Receive Date: 20220722
  Receipt Date: 20220722
  Transmission Date: 20221027
  Serious: Yes (Death, Other)
  Sender: FDA-Public Use
  Company Number: US-ENDO PHARMACEUTICALS INC-2022-004449

PATIENT
  Age: 56 Year
  Sex: Male

DRUGS (4)
  1. TRAMADOL HYDROCHLORIDE [Suspect]
     Active Substance: TRAMADOL HYDROCHLORIDE
     Indication: Product used for unknown indication
     Dosage: UNK UNKNOWN, UNKNOWN
     Route: 065
  2. AMITRIPTYLINE HYDROCHLORIDE [Suspect]
     Active Substance: AMITRIPTYLINE HYDROCHLORIDE
     Indication: Antidepressant therapy
     Dosage: UNK UNKNOWN, UNKNOWN
     Route: 065
  3. TRAMADOL [Suspect]
     Active Substance: TRAMADOL
     Indication: Product used for unknown indication
     Dosage: UNK UNKNOWN, UNKNOWN
     Route: 065
  4. MAVYRET [Concomitant]
     Active Substance: GLECAPREVIR\PIBRENTASVIR
     Indication: Product used for unknown indication
     Dosage: UNK UNKNOWN, UNKNOWN - DOUBLE-DOSAGE OF 7 REQUIRED FOR A WEEK OF TREATMENT
     Route: 065
     Dates: start: 2017

REACTIONS (3)
  - Pneumonia [Fatal]
  - Toxicity to various agents [Fatal]
  - Drug diversion [Unknown]

NARRATIVE: CASE EVENT DATE: 20170101
